FAERS Safety Report 5312011-2 (Version None)
Quarter: 2007Q2

REPORT INFORMATION
  Report Type: 
  Country: None (occurrence: None)
  Receive Date: 20070430
  Receipt Date: 20070420
  Transmission Date: 20071010
  Serious: Yes (Hospitalization, Disabling, Other)
  Sender: FDA-Public Use
  Company Number: ES-GENENTECH-240075

PATIENT
  Sex: Female
  Weight: 51 kg

DRUGS (2)
  1. MABTHERA [Suspect]
     Indication: LYMPHOMA
     Dates: start: 20070312, end: 20070312
  2. MABTHERA [Suspect]
     Dosage: 375 MG/M2, UNK
     Route: 042
     Dates: start: 20070326, end: 20070326

REACTIONS (1)
  - CONFUSIONAL STATE [None]
